FAERS Safety Report 26165176 (Version 1)
Quarter: 2025Q4

REPORT INFORMATION
  Report Type: Spontaneous
  Country: VN (occurrence: VN)
  Receive Date: 20251216
  Receipt Date: 20251216
  Transmission Date: 20260117
  Serious: Yes (Other)
  Sender: AMGEN
  Company Number: VN-AMGEN-VNMSP2025244395

PATIENT
  Age: 43 Year
  Sex: Male

DRUGS (2)
  1. BEVACIZUMAB [Suspect]
     Active Substance: BEVACIZUMAB
     Indication: Colorectal adenocarcinoma
     Dosage: UNK (16 CYCLES)
     Route: 065
  2. CAPECITABINE [Concomitant]
     Active Substance: CAPECITABINE
     Indication: Colorectal adenocarcinoma
     Dosage: 16 CYCLES
     Route: 048

REACTIONS (3)
  - Lung adenocarcinoma [Unknown]
  - Palmar-plantar erythrodysaesthesia syndrome [Unknown]
  - Therapy partial responder [Unknown]
